FAERS Safety Report 21630720 (Version 1)
Quarter: 2022Q4

REPORT INFORMATION
  Report Type: Other
  Country: PH (occurrence: None)
  Receive Date: 20221123
  Receipt Date: 20221123
  Transmission Date: 20230113
  Serious: Yes (Death)
  Sender: FDA-Public Use
  Company Number: PH-ROCHE-3223595

PATIENT
  Age: 57 Year
  Sex: Female

DRUGS (3)
  1. AVASTIN [Suspect]
     Active Substance: BEVACIZUMAB
     Indication: Ovarian epithelial cancer
     Dosage: MORE DOSAGE INFORMATION AVASTIN 400MG 1 VIAL, FORMULATION: VIAL
     Route: 042
  2. AVASTIN [Suspect]
     Active Substance: BEVACIZUMAB
     Indication: Fallopian tube cancer
     Dosage: MORE DOSAGE INFORMATION AVASTIN 100MG 1 VIAL, FORMULATION: VIAL
     Route: 042
  3. AVASTIN [Suspect]
     Active Substance: BEVACIZUMAB
     Indication: Malignant peritoneal neoplasm

REACTIONS (1)
  - Pulmonary embolism [Fatal]
